FAERS Safety Report 25216611 (Version 1)
Quarter: 2025Q2

REPORT INFORMATION
  Report Type: Spontaneous
  Country: IT (occurrence: IT)
  Receive Date: 20250419
  Receipt Date: 20250419
  Transmission Date: 20250717
  Serious: Yes (Other)
  Sender: ACCORD
  Company Number: None

PATIENT
  Age: 22 Year
  Sex: Female
  Weight: 69 kg

DRUGS (4)
  1. CISPLATIN [Suspect]
     Active Substance: CISPLATIN
     Indication: Endocrine neoplasm malignant
     Dates: start: 20241209
  2. ETOPOSIDE [Suspect]
     Active Substance: ETOPOSIDE
     Indication: Endocrine neoplasm malignant
     Dates: start: 20241209
  3. DOXORUBICIN [Suspect]
     Active Substance: DOXORUBICIN
     Indication: Endocrine neoplasm malignant
     Dates: start: 20241209
  4. MITOTANE [Suspect]
     Active Substance: MITOTANE
     Indication: Endocrine neoplasm malignant
     Dates: start: 20240701

REACTIONS (2)
  - Anaemia [Recovered/Resolved]
  - Neutropenia [Recovered/Resolved]

NARRATIVE: CASE EVENT DATE: 20250122
